FAERS Safety Report 6342850-0 (Version None)
Quarter: 2009Q3

REPORT INFORMATION
  Report Type: 
  Country: None (occurrence: None)
  Receive Date: 20090908
  Receipt Date: 20090901
  Transmission Date: 20100115
  Serious: Yes (Hospitalization)
  Sender: FDA-Public Use
  Company Number: US-BRISTOL-MYERS SQUIBB COMPANY-13897509

PATIENT
  Age: 76 Year
  Sex: Male
  Weight: 82 kg

DRUGS (13)
  1. SINEMET [Suspect]
     Route: 048
  2. VIOXX [Suspect]
     Indication: ARTHRITIS
     Route: 048
     Dates: start: 20010601, end: 20020501
  3. VIOXX [Suspect]
     Indication: JOINT INJURY
     Route: 048
     Dates: start: 20010601, end: 20020501
  4. ALTACE [Concomitant]
  5. LASIX [Concomitant]
     Dates: start: 20011001
  6. LIPITOR [Concomitant]
  7. LOPRESSOR [Concomitant]
  8. NEXIUM [Concomitant]
  9. PREVACID [Concomitant]
  10. NABUMETONE [Concomitant]
     Dates: start: 20010406, end: 20020301
  11. VIAGRA [Concomitant]
  12. ASPIRIN [Concomitant]
  13. CARBIDOPA-LEVODOPA [Concomitant]

REACTIONS (41)
  - ABDOMINAL PAIN [None]
  - ANGINA UNSTABLE [None]
  - AORTIC VALVE INCOMPETENCE [None]
  - ARTERIOSCLEROSIS [None]
  - BALANCE DISORDER [None]
  - BUNDLE BRANCH BLOCK LEFT [None]
  - CARDIAC MURMUR [None]
  - CAROTID ARTERY DISEASE [None]
  - CHEST PAIN [None]
  - CHOKING [None]
  - COMPRESSION FRACTURE [None]
  - CONTUSION [None]
  - CORONARY ARTERY DISEASE [None]
  - CORONARY ARTERY RESTENOSIS [None]
  - COUGH [None]
  - DIARRHOEA [None]
  - EMPYEMA [None]
  - EXCORIATION [None]
  - FALL [None]
  - FRACTURE [None]
  - HAEMATOMA [None]
  - HYPERLIPIDAEMIA [None]
  - HYPOTENSION [None]
  - JOINT SWELLING [None]
  - LACUNAR INFARCTION [None]
  - LEFT ATRIAL DILATATION [None]
  - LEFT VENTRICULAR HYPERTROPHY [None]
  - MUSCLE DISORDER [None]
  - MYOCARDIAL INFARCTION [None]
  - NEOPLASM MALIGNANT [None]
  - OEDEMA PERIPHERAL [None]
  - PARKINSON'S DISEASE [None]
  - PERIARTHRITIS [None]
  - PLEURAL CALCIFICATION [None]
  - RADICULOPATHY [None]
  - ROTATOR CUFF SYNDROME [None]
  - SPINAL OSTEOARTHRITIS [None]
  - SYNCOPE [None]
  - THERMAL BURN [None]
  - TOBACCO ABUSE [None]
  - TRICUSPID VALVE INCOMPETENCE [None]
